FAERS Safety Report 8260054-1 (Version None)
Quarter: 2012Q1

REPORT INFORMATION
  Report Type: 
  Country: None (occurrence: None)
  Receive Date: 20120327
  Receipt Date: 20080501
  Transmission Date: 20120608
  Serious: Yes (Hospitalization)
  Sender: FDA-Public Use
  Company Number: PHEH2008US04267

PATIENT
  Sex: Male

DRUGS (3)
  1. REGLAN/USA/(METOCLOPRAMIDE HYDROCHLORIDE) [Concomitant]
  2. GLEEVEC [Suspect]
     Dosage: 400 MG, NEXT DAY 300 MG, ORAL
     Route: 048
     Dates: start: 20070312, end: 20080420
  3. PROTONIX [Concomitant]

REACTIONS (6)
  - RASH [None]
  - GASTRIC CANCER STAGE IV [None]
  - GASTRECTOMY [None]
  - MUSCLE SPASMS [None]
  - DIARRHOEA [None]
  - VOMITING [None]
